FAERS Safety Report 5819987-5 (Version None)
Quarter: 2008Q3

REPORT INFORMATION
  Report Type: 
  Country: None (occurrence: None)
  Receive Date: 20080721
  Receipt Date: 20080716
  Transmission Date: 20090109
  Serious: Yes (Death, Hospitalization, Other)
  Sender: FDA-Public Use
  Company Number: 2008SP009002

PATIENT
  Age: 62 Year
  Sex: Male

DRUGS (37)
  1. TEMODAR [Suspect]
     Indication: GLIOMA
     Dosage: 140 MG; PO
     Route: 048
     Dates: start: 20071115, end: 20071204
  2. MULTI-VITAMINS [Concomitant]
  3. DEXAMETHASONE [Concomitant]
  4. PRILOSEC [Concomitant]
  5. KYTRIL [Concomitant]
  6. SEPTRA DS [Concomitant]
  7. ACETAMINOPHEN [Concomitant]
  8. ALBUTEROL [Concomitant]
  9. ALUMINUM HYDROXIDE/MAGNESIUM CARBONATE [Concomitant]
  10. ARTIFICIAL TEARS [Concomitant]
  11. ADENOSINE [Concomitant]
  12. AMIODARONE [Concomitant]
  13. CEFEPIME [Concomitant]
  14. FILGRASTIM [Concomitant]
  15. HYDROCORTISONE [Concomitant]
  16. INSULIN ASPART [Concomitant]
  17. IPRATROPIUM BROMIDE [Concomitant]
  18. IBUPROFEN [Concomitant]
  19. LORAZEPAM [Concomitant]
  20. MAGNESIUM HYDROXIDE TAB [Concomitant]
  21. MAGNESIUM SULFATE [Concomitant]
  22. MORPHINE [Concomitant]
  23. NOREPINEPHRINE [Concomitant]
  24. NS [Concomitant]
  25. ONDANSETRON [Concomitant]
  26. OXYCODONE HCL [Concomitant]
  27. PANTOPRAZOLE SODIUM [Concomitant]
  28. PHENYLEPHRINE [Concomitant]
  29. PROPOXYPHENE NAPSYLATE W/ ACETAMINOPHEN [Concomitant]
  30. POTASSIUM CHLORIDE [Concomitant]
  31. VANCOMYCIN HCL [Concomitant]
  32. ZOLPIDEM [Concomitant]
  33. COMPAZINE [Concomitant]
  34. DIFLUCAN [Concomitant]
  35. PREVACID [Concomitant]
  36. DECADRON [Concomitant]
  37. BACTRIM [Concomitant]

REACTIONS (8)
  - ASTHENIA [None]
  - COUGH [None]
  - DISEASE PROGRESSION [None]
  - DYSPNOEA [None]
  - PNEUMONIA [None]
  - PYREXIA [None]
  - SEPSIS [None]
  - SYNCOPE [None]
